FAERS Safety Report 6941423-6 (Version None)
Quarter: 2010Q3

REPORT INFORMATION
  Report Type: 
  Country: None (occurrence: None)
  Receive Date: 20100824
  Receipt Date: 20100824
  Transmission Date: 20110219
  Serious: Yes (Other)
  Sender: FDA-Public Use
  Company Number: None

PATIENT
  Age: 55 Year
  Sex: Female
  Weight: 77.1115 kg

DRUGS (1)
  1. FEXOFENADINE HCL [Suspect]
     Indication: MULTIPLE ALLERGIES
     Dosage: ONE DAILY PO
     Route: 048
     Dates: start: 20100818, end: 20100820

REACTIONS (5)
  - CRYING [None]
  - EMOTIONAL DISORDER [None]
  - MIGRAINE [None]
  - PARANOIA [None]
  - PRODUCT QUALITY ISSUE [None]
